FAERS Safety Report 5918436-6 (Version None)
Quarter: 2008Q4

REPORT INFORMATION
  Report Type: 
  Country: None (occurrence: None)
  Receive Date: 20081015
  Receipt Date: 20081010
  Transmission Date: 20090506
  Serious: Yes (Other)
  Sender: FDA-Public Use
  Company Number: IT-RANBAXY-2008RR-18571

PATIENT
  Sex: Male

DRUGS (1)
  1. AMOXICILLIN [Suspect]

REACTIONS (2)
  - ORAL HERPES [None]
  - RASH VESICULAR [None]
